FAERS Safety Report 4371993-6 (Version None)
Quarter: 2004Q2

REPORT INFORMATION
  Report Type: 
  Country: None (occurrence: None)
  Receive Date: 20040602
  Receipt Date: 20040510
  Transmission Date: 20050107
  Serious: No
  Sender: FDA-Public Use
  Company Number: PHBS2004SE06272

PATIENT
  Sex: Male

DRUGS (1)
  1. LIORESAL [Suspect]
     Indication: HEAD INJURY
     Dates: start: 19970101, end: 19980101

REACTIONS (2)
  - BLOOD ALKALINE PHOSPHATASE INCREASED [None]
  - TRANSAMINASES INCREASED [None]
